FAERS Safety Report 12508863 (Version 1)
Quarter: 2016Q2

REPORT INFORMATION
  Report Type: Spontaneous
  Country: US (occurrence: US)
  Receive Date: 20160629
  Receipt Date: 20160629
  Transmission Date: 20160815
  Serious: No
  Sender: FDA-Public Use
  Company Number: US-AMGEN-USASP2016083274

PATIENT
  Age: 62 Year
  Sex: Female
  Weight: 66.21 kg

DRUGS (1)
  1. ENBREL [Suspect]
     Active Substance: ETANERCEPT
     Indication: PSORIASIS
     Dosage: 50 MG, ONCE A WEEK
     Route: 058
     Dates: start: 20080305, end: 2014

REACTIONS (2)
  - Therapeutic response decreased [Unknown]
  - Psoriasis [Not Recovered/Not Resolved]
